FAERS Safety Report 12583512 (Version 5)
Quarter: 2016Q4

REPORT INFORMATION
  Report Type: Spontaneous
  Country: US (occurrence: US)
  Receive Date: 20160722
  Receipt Date: 20161103
  Transmission Date: 20170207
  Serious: Yes (Other)
  Sender: FDA-Public Use
  Company Number: US-TEVA-677842ACC

PATIENT
  Age: 28 Year
  Sex: Female

DRUGS (1)
  1. PARAGARD T 380A [Suspect]
     Active Substance: COPPER
     Indication: CONTRACEPTION
     Dates: start: 20130728

REACTIONS (5)
  - Menstruation delayed [Not Recovered/Not Resolved]
  - Pregnancy on contraceptive [Unknown]
  - Exposure during pregnancy [Unknown]
  - Device dislocation [Not Recovered/Not Resolved]
  - Uterine malposition [Not Recovered/Not Resolved]

NARRATIVE: CASE EVENT DATE: 2016
